FAERS Safety Report 8096126-4 (Version None)
Quarter: 2012Q1

REPORT INFORMATION
  Report Type: 
  Country: None (occurrence: None)
  Receive Date: 20120131
  Receipt Date: 20120130
  Transmission Date: 20120608
  Serious: Yes (Death)
  Sender: FDA-Public Use
  Company Number: US-GLAXOSMITHKLINE-A0961643A

PATIENT
  Age: 77 Year
  Sex: Male

DRUGS (11)
  1. FINASTERIDE [Concomitant]
     Route: 048
  2. LOPRESSOR [Concomitant]
     Route: 048
  3. CRESTOR [Concomitant]
     Route: 048
  4. ASPIRIN [Concomitant]
     Route: 048
  5. MORPHINE SULFATE [Concomitant]
  6. LOVENOX [Concomitant]
  7. ISOSORBIDE DINITRATE [Concomitant]
     Route: 048
  8. VERAPAMIL [Concomitant]
     Route: 048
  9. SELENIUM [Concomitant]
     Route: 048
  10. VOTRIENT [Suspect]
     Indication: PRODUCT USED FOR UNKNOWN INDICATION
     Dosage: 800MG PER DAY
     Route: 048
     Dates: start: 20110809
  11. MULTI-VITAMIN [Concomitant]
     Route: 048

REACTIONS (1)
  - NEOPLASM MALIGNANT [None]
